FAERS Safety Report 25342171 (Version 1)
Quarter: 2025Q2

REPORT INFORMATION
  Report Type: Spontaneous
  Country: CA (occurrence: CA)
  Receive Date: 20250521
  Receipt Date: 20250521
  Transmission Date: 20250716
  Serious: Yes (Hospitalization, Other)
  Sender: FRESENIUS KABI
  Company Number: CA-FreseniusKabi-FK202507116

PATIENT
  Age: 63 Year
  Sex: Female
  Weight: 72.3 kg

DRUGS (8)
  1. BLEOMYCIN [Suspect]
     Active Substance: BLEOMYCIN SULFATE
     Indication: Hodgkin^s disease
     Route: 042
     Dates: start: 20250307
  2. VINBLASTINE [Suspect]
     Active Substance: VINBLASTINE
     Indication: Hodgkin^s disease
     Route: 042
     Dates: start: 20250307
  3. DACARBAZINE [Suspect]
     Active Substance: DACARBAZINE
     Indication: Hodgkin^s disease
     Route: 042
     Dates: start: 20250307
  4. DOXORUBICIN HYDROCHLORIDE [Suspect]
     Active Substance: DOXORUBICIN HYDROCHLORIDE
     Indication: Hodgkin^s disease
     Route: 042
     Dates: start: 20250307
  5. LORAZEPAM [Concomitant]
     Active Substance: LORAZEPAM
     Indication: Anxiety
     Route: 048
     Dates: start: 20150609
  6. LIDOCAINE;NYSTATIN;WATER [Concomitant]
     Indication: Stomatitis
     Route: 048
     Dates: start: 20250319
  7. OMEPRAZOLE [Concomitant]
     Active Substance: OMEPRAZOLE
     Indication: Gastrooesophageal reflux disease
     Route: 048
     Dates: start: 20250319
  8. ONDANSETRON [Concomitant]
     Active Substance: ONDANSETRON
     Indication: Nausea
     Dates: start: 20250305

REACTIONS (2)
  - Febrile neutropenia [Recovered/Resolved]
  - Embolism [Recovered/Resolved]

NARRATIVE: CASE EVENT DATE: 20250502
